FAERS Safety Report 12783731 (Version 1)
Quarter: 2016Q3

REPORT INFORMATION
  Report Type: Spontaneous
  Country: FR (occurrence: FR)
  Receive Date: 20160927
  Receipt Date: 20160927
  Transmission Date: 20161109
  Serious: Yes (Hospitalization, Other)
  Sender: FDA-Public Use
  Company Number: FR-ASTRAZENECA-2016SF00971

PATIENT
  Age: 11581 Day
  Sex: Male
  Weight: 90 kg

DRUGS (1)
  1. SYMBICORT [Suspect]
     Active Substance: BUDESONIDE\FORMOTEROL FUMARATE DIHYDRATE
     Indication: ASTHMA
     Dosage: ONE INHALATION IN THE MORNING AND IN THE EVENING
     Route: 055
     Dates: start: 20160719, end: 20160719

REACTIONS (3)
  - Coronary artery occlusion [Unknown]
  - Prinzmetal angina [Unknown]
  - Chest pain [Recovered/Resolved]

NARRATIVE: CASE EVENT DATE: 20160720
